FAERS Safety Report 7650154-9 (Version None)
Quarter: 2011Q3

REPORT INFORMATION
  Report Type: 
  Country: None (occurrence: None)
  Receive Date: 20110802
  Receipt Date: 20110722
  Transmission Date: 20111222
  Serious: Yes (Life-Threatening, Hospitalization)
  Sender: FDA-Public Use
  Company Number: DE-BAYER-2011-059207

PATIENT
  Age: 68 Year
  Sex: Female

DRUGS (3)
  1. ULTRAVIST 150 [Suspect]
     Indication: UROGRAM
     Dosage: UNK
     Route: 042
     Dates: start: 20100916, end: 20100916
  2. CIPROFLOXACIN [Concomitant]
  3. INTRAVENOUS FLUIDS [Concomitant]
     Route: 042

REACTIONS (13)
  - ANAPHYLACTIC SHOCK [None]
  - CHILLS [None]
  - MALAISE [None]
  - COMA [None]
  - NAUSEA [None]
  - UROSEPSIS [None]
  - MULTI-ORGAN FAILURE [None]
  - LUNG INFILTRATION [None]
  - ASTHENIA [None]
  - RENAL FAILURE ACUTE [None]
  - MENTAL DISORDER DUE TO A GENERAL MEDICAL CONDITION [None]
  - SEPTIC SHOCK [None]
  - ISCHAEMIC HEPATITIS [None]
